FAERS Safety Report 19787573 (Version 1)
Quarter: 2021Q3

REPORT INFORMATION
  Report Type: Spontaneous
  Country: DE (occurrence: DE)
  Receive Date: 20210903
  Receipt Date: 20210903
  Transmission Date: 20211014
  Serious: Yes (Hospitalization)
  Sender: FDA-Public Use
  Company Number: DE-INCYTE CORPORATION-2021IN006177

PATIENT

DRUGS (1)
  1. JAKAVI [Suspect]
     Active Substance: RUXOLITINIB
     Indication: POLYCYTHAEMIA VERA
     Dosage: 15 MG, BID (2X DAILY)JAKAVI FOR ALMOST SIX YEARS (PACKAGE SIZE OF 56)
     Route: 065

REACTIONS (4)
  - Chronic sinusitis [Unknown]
  - Natural killer cell count decreased [Unknown]
  - Pneumonia [Unknown]
  - Cystitis [Unknown]
